FAERS Safety Report 5511252-9 (Version None)
Quarter: 2007Q4

REPORT INFORMATION
  Report Type: 
  Country: None (occurrence: None)
  Receive Date: 20071109
  Receipt Date: 20071030
  Transmission Date: 20080405
  Serious: Yes (Hospitalization)
  Sender: FDA-Public Use
  Company Number: TH-ROCHE-528761

PATIENT
  Age: 24 Month
  Sex: Male
  Weight: 8.5 kg

DRUGS (5)
  1. OSELTAMIVIR [Suspect]
     Indication: AVIAN INFLUENZA
     Dosage: DOSE REPORTED AS : 30MG FROM BOTTLE A AND 30MG FROM BOTTLE B. THE LAST DOSE WAS ADMINISTERED 16/10/+
     Route: 065
  2. AMOXICILLIN [Concomitant]
     Route: 048
     Dates: start: 20071029, end: 20071030
  3. PSEUDOEPHEDRINE HCL [Concomitant]
     Indication: RHINITIS
     Route: 048
     Dates: start: 20071029, end: 20071030
  4. UNSPECIFIED DRUG [Concomitant]
     Indication: COUGH
     Dosage: DRUG REPORTED AS: GUAIACOLATE
     Route: 048
     Dates: start: 20071026, end: 20071030
  5. PARACETAMOL [Concomitant]
     Dosage: DRUG REPORTED AS: PARACETAMOL SYRUP
     Route: 048
     Dates: start: 20071026, end: 20071030

REACTIONS (2)
  - DEHYDRATION [None]
  - PYREXIA [None]
